FAERS Safety Report 6652040-X (Version None)
Quarter: 2010Q1

REPORT INFORMATION
  Report Type: 
  Country: None (occurrence: None)
  Receive Date: 20100325
  Receipt Date: 20100322
  Transmission Date: 20100710
  Serious: Yes (Death, Life-Threatening, Hospitalization)
  Sender: FDA-Public Use
  Company Number: DE-ROCHE-680576

PATIENT
  Sex: Female
  Weight: 100 kg

DRUGS (11)
  1. CAPECITABINE [Suspect]
     Dosage: GIVEN ON DAYS 1-14; TEMPORARILY INTERRUPTED
     Route: 048
     Dates: start: 20100108, end: 20100112
  2. CAPECITABINE [Suspect]
     Dosage: DOSE REDUCED
     Route: 048
     Dates: start: 20100127
  3. CAPECITABINE [Suspect]
     Route: 048
     Dates: start: 20100129
  4. DOCETAXEL [Suspect]
     Route: 042
     Dates: start: 20100108, end: 20100115
  5. DOCETAXEL [Suspect]
     Dosage: REDUCED DOSE.
     Route: 042
     Dates: start: 20100127
  6. DOCETAXEL [Suspect]
     Route: 042
     Dates: start: 20100129
  7. CISPLATIN [Suspect]
     Dosage: FORM: INFUSION.
     Route: 042
     Dates: start: 20100108, end: 20100115
  8. CISPLATIN [Suspect]
     Dosage: REDUCED DOSE.
     Route: 042
     Dates: start: 20100127
  9. CISPLATIN [Suspect]
     Route: 042
     Dates: start: 20100129
  10. METFORMIN HCL [Concomitant]
     Dates: start: 20040101, end: 20100201
  11. BERLTHYROX [Concomitant]
     Dates: start: 19820101, end: 20100201

REACTIONS (3)
  - DEHYDRATION [None]
  - NEUTROPENIA [None]
  - VOMITING [None]
